FAERS Safety Report 16070584 (Version 1)
Quarter: 2019Q1

REPORT INFORMATION
  Report Type: Spontaneous
  Country: US (occurrence: US)
  Receive Date: 20190212
  Receipt Date: 20190212
  Transmission Date: 20190418
  Serious: Yes (Other)
  Sender: FDA-Public Use
  Company Number: None

PATIENT
  Age: 69 Year
  Sex: Male

DRUGS (1)
  1. SUAVE MEN DEEP CLEAN MINT REFRESH ANTIDANDRUFF [Suspect]
     Active Substance: PYRITHIONE ZINC
     Dates: start: 20180723, end: 20180723

REACTIONS (4)
  - Eye pain [None]
  - Product complaint [None]
  - Product contamination chemical [None]
  - Eye irritation [None]

NARRATIVE: CASE EVENT DATE: 20180723
